FAERS Safety Report 17250158 (Version 1)
Quarter: 2020Q1

REPORT INFORMATION
  Report Type: Report from Study
  Country: US (occurrence: US)
  Receive Date: 20200109
  Receipt Date: 20200109
  Transmission Date: 20200409
  Serious: Yes (Life-Threatening)
  Sender: FDA-Public Use
  Company Number: US-ROCHE-2515480

PATIENT
  Age: 66 Year
  Sex: Female

DRUGS (3)
  1. ALTEPLASE. [Suspect]
     Active Substance: ALTEPLASE
     Indication: ISCHAEMIC STROKE
     Route: 042
  2. HEPARIN [Concomitant]
     Active Substance: HEPARIN SODIUM
  3. PROTAMINE SULFATE. [Concomitant]
     Active Substance: PROTAMINE SULFATE

REACTIONS (3)
  - Tachycardia [Unknown]
  - Pneumonia haemophilus [Unknown]
  - Acute respiratory failure [Unknown]
